FAERS Safety Report 18078128 (Version 1)
Quarter: 2020Q3

REPORT INFORMATION
  Report Type: Spontaneous
  Country: US (occurrence: US)
  Receive Date: 20200727
  Receipt Date: 20200727
  Transmission Date: 20201103
  Serious: No
  Sender: FDA-Public Use
  Company Number: US-SEATTLE GENETICS-2020SGN02652

PATIENT
  Sex: Male

DRUGS (2)
  1. XELODA [Concomitant]
     Active Substance: CAPECITABINE
  2. TUKYSA [Suspect]
     Active Substance: TUCATINIB
     Indication: COLON CANCER
     Dosage: UNK, BID

REACTIONS (5)
  - Off label use [Unknown]
  - Tumour marker abnormal [Unknown]
  - Dry skin [Unknown]
  - Tumour marker increased [Unknown]
  - Blood cholesterol decreased [Unknown]
